FAERS Safety Report 18070464 (Version 3)
Quarter: 2020Q3

REPORT INFORMATION
  Report Type: Spontaneous
  Country: US (occurrence: US)
  Receive Date: 20200727
  Receipt Date: 20200811
  Transmission Date: 20201103
  Serious: No
  Sender: FDA-Public Use
  Company Number: US-BIOGEN-2020BI00895714

PATIENT
  Sex: Female

DRUGS (3)
  1. TECFIDERA [Suspect]
     Active Substance: DIMETHYL FUMARATE
     Dosage: FROM DAY 8
     Route: 065
     Dates: start: 20200707
  2. TECFIDERA [Suspect]
     Active Substance: DIMETHYL FUMARATE
     Indication: MULTIPLE SCLEROSIS
     Dosage: SAMPLE PACK FOR THE 1ST WEEK
     Route: 065
     Dates: start: 20200630
  3. TECFIDERA [Suspect]
     Active Substance: DIMETHYL FUMARATE
     Route: 048
     Dates: start: 20200724

REACTIONS (9)
  - Initial insomnia [Unknown]
  - Diarrhoea [Unknown]
  - Abdominal pain [Unknown]
  - Lethargy [Unknown]
  - Fatigue [Unknown]
  - Weight decreased [Unknown]
  - Flushing [Not Recovered/Not Resolved]
  - Vomiting [Unknown]
  - Nausea [Not Recovered/Not Resolved]
